FAERS Safety Report 6724751-9 (Version None)
Quarter: 2010Q2

REPORT INFORMATION
  Report Type: 
  Country: None (occurrence: None)
  Receive Date: 20100511
  Receipt Date: 20100430
  Transmission Date: 20101027
  Serious: Yes (Other)
  Sender: FDA-Public Use
  Company Number: 2010US001488

PATIENT
  Age: 69 Year
  Sex: Male

DRUGS (1)
  1. LEXISCAN [Suspect]
     Indication: SCAN MYOCARDIAL PERFUSION
     Dosage: 1 DF, TOTAL DOSE, IV NOS
     Route: 042

REACTIONS (3)
  - ELECTROCARDIOGRAM ST SEGMENT ABNORMAL [None]
  - MYOCARDIAL ISCHAEMIA [None]
  - TROPONIN INCREASED [None]
